FAERS Safety Report 20952415 (Version 1)
Quarter: 2022Q2

REPORT INFORMATION
  Report Type: Spontaneous
  Country: CN (occurrence: None)
  Receive Date: 20220613
  Receipt Date: 20220613
  Transmission Date: 20220720
  Serious: Yes (Other)
  Sender: FDA-Public Use
  Company Number: 2022A210133

PATIENT
  Age: 61 Year
  Sex: Male

DRUGS (4)
  1. OSIMERTINIB [Suspect]
     Active Substance: OSIMERTINIB
     Indication: Lung adenocarcinoma stage IV
     Route: 048
  2. OSIMERTINIB [Suspect]
     Active Substance: OSIMERTINIB
     Indication: Lung adenocarcinoma stage IV
     Route: 048
     Dates: start: 202010
  3. GEFITINIB [Suspect]
     Active Substance: GEFITINIB
     Indication: Lung adenocarcinoma stage IV
     Route: 048
  4. ICOTINIB [Concomitant]
     Active Substance: ICOTINIB
     Route: 065
     Dates: start: 202010

REACTIONS (4)
  - Drug resistance [Unknown]
  - Hepatotoxicity [Unknown]
  - Malignant neoplasm progression [Unknown]
  - EGFR gene mutation [Unknown]

NARRATIVE: CASE EVENT DATE: 20200901
